FAERS Safety Report 8118442-X (Version None)
Quarter: 2012Q1

REPORT INFORMATION
  Report Type: 
  Country: None (occurrence: None)
  Receive Date: 20120207
  Receipt Date: 20120124
  Transmission Date: 20120608
  Serious: Yes (Other)
  Sender: FDA-Public Use
  Company Number: US-UCBSA-050425

PATIENT
  Age: 44 Year
  Sex: Male

DRUGS (3)
  1. ACETAMINOPHEN [Suspect]
     Route: 045
  2. HYDROCODONE BITARTRATE AND ACETAMINOPHEN [Suspect]
     Route: 045
  3. OXYCODONE/ACETAMINOPHEN [Suspect]
     Route: 045

REACTIONS (2)
  - DRUG ABUSE [None]
  - NASOPHARYNGITIS [None]
